FAERS Safety Report 10673800 (Version 1)
Quarter: 2014Q4

REPORT INFORMATION
  Report Type: Spontaneous
  Country: IN (occurrence: None)
  Receive Date: 20141222
  Receipt Date: 20141222
  Transmission Date: 20150529
  Serious: Yes (Other)
  Sender: FDA-Public Use
  Company Number: 2014JUB00217

PATIENT
  Age: 30 Year
  Sex: Male

DRUGS (1)
  1. RISPERIDONE (RISPERIDONE) UNKNOWN [Suspect]
     Active Substance: RISPERIDONE
     Indication: SCHIZOPHRENIA, UNDIFFERENTIATED TYPE

REACTIONS (2)
  - Hallucination, auditory [None]
  - Mania [None]
